FAERS Safety Report 16791861 (Version 1)
Quarter: 2019Q3

REPORT INFORMATION
  Report Type: Spontaneous
  Country: US (occurrence: US)
  Receive Date: 20190910
  Receipt Date: 20190910
  Transmission Date: 20191005
  Serious: No
  Sender: FDA-Public Use
  Company Number: US-PFIZER INC-2019387929

PATIENT

DRUGS (2)
  1. BIAXIN [Suspect]
     Active Substance: CLARITHROMYCIN
     Dosage: UNK
  2. LYRICA [Suspect]
     Active Substance: PREGABALIN
     Dosage: 300 MG, [1 IN 3 D]
     Route: 048
     Dates: start: 20180420

REACTIONS (3)
  - Pruritus allergic [Unknown]
  - Pruritus [Unknown]
  - Drug hypersensitivity [Unknown]
